FAERS Safety Report 9631294 (Version 2)
Quarter: 2013Q4

REPORT INFORMATION
  Report Type: Spontaneous
  Country: JP (occurrence: JP)
  Receive Date: 20131018
  Receipt Date: 20131018
  Transmission Date: 20140711
  Serious: Yes (Hospitalization, Other)
  Sender: FDA-Public Use
  Company Number: JP-JNJFOC-20131000535

PATIENT
  Age: 84 Year
  Sex: Female
  Weight: 35 kg

DRUGS (8)
  1. XARELTO [Suspect]
     Indication: THROMBOSIS PROPHYLAXIS
     Route: 048
     Dates: start: 20130821, end: 20130824
  2. BAYASPIRIN [Interacting]
     Indication: CEREBRAL INFARCTION
     Route: 048
     Dates: start: 20130904
  3. BAYASPIRIN [Interacting]
     Indication: CEREBRAL INFARCTION
     Route: 048
     Dates: end: 20130823
  4. BAYASPIRIN [Interacting]
     Indication: MYOCARDIAL INFARCTION
     Route: 048
     Dates: end: 20130823
  5. BAYASPIRIN [Interacting]
     Indication: MYOCARDIAL INFARCTION
     Route: 048
     Dates: start: 20130904
  6. BLOPRESS [Concomitant]
     Indication: HYPERTENSION
     Route: 048
  7. SPIRONOLACTONE [Concomitant]
     Indication: HYPERTENSION
     Route: 048
  8. ARTIST [Concomitant]
     Indication: MYOCARDIAL INFARCTION
     Route: 048

REACTIONS (3)
  - Cerebral infarction [Unknown]
  - Haemorrhagic cerebral infarction [Recovered/Resolved]
  - Drug interaction [Unknown]
